FAERS Safety Report 7054525-3 (Version None)
Quarter: 2010Q4

REPORT INFORMATION
  Report Type: 
  Country: None (occurrence: None)
  Receive Date: 20101020
  Receipt Date: 20100924
  Transmission Date: 20110411
  Serious: Yes (Hospitalization)
  Sender: FDA-Public Use
  Company Number: NL-CELGENEUS-114-21880-10061888

PATIENT
  Sex: Female
  Weight: 53 kg

DRUGS (3)
  1. REVLIMID [Suspect]
     Route: 048
     Dates: start: 20100520, end: 20100603
  2. REVLIMID [Suspect]
     Route: 048
     Dates: start: 20100624
  3. FEXOFENADINE HCL [Concomitant]
     Route: 048
     Dates: end: 20100530

REACTIONS (3)
  - POLYMYALGIA RHEUMATICA [None]
  - PYREXIA [None]
  - URINARY TRACT INFECTION [None]
